FAERS Safety Report 21887042 (Version 7)
Quarter: 2023Q2

REPORT INFORMATION
  Report Type: Report from Study
  Country: CA (occurrence: CA)
  Receive Date: 20230119
  Receipt Date: 20230620
  Transmission Date: 20230722
  Serious: Yes (Hospitalization, Other)
  Sender: FDA-Public Use
  Company Number: CA-JNJFOC-20230127220

PATIENT
  Age: 54 Year
  Sex: Female

DRUGS (3)
  1. SIMPONI [Suspect]
     Active Substance: GOLIMUMAB
     Indication: Rheumatoid arthritis
     Route: 058
     Dates: start: 20190528
  2. SIMPONI [Suspect]
     Active Substance: GOLIMUMAB
     Route: 058
  3. TYLENOL [Concomitant]
     Active Substance: ACETAMINOPHEN
     Indication: Pain
     Route: 048

REACTIONS (6)
  - Pneumonia [Recovering/Resolving]
  - Thrombosis [Recovered/Resolved]
  - Rheumatoid arthritis [Not Recovered/Not Resolved]
  - Urinary tract infection [Recovered/Resolved]
  - Bacterial infection [Unknown]
  - Off label use [Unknown]

NARRATIVE: CASE EVENT DATE: 20230101
